FAERS Safety Report 7298528-2 (Version None)
Quarter: 2011Q1

REPORT INFORMATION
  Report Type: 
  Country: None (occurrence: None)
  Receive Date: 20110217
  Receipt Date: 20110210
  Transmission Date: 20110831
  Serious: Yes (Other)
  Sender: FDA-Public Use
  Company Number: JP-EISAI INC-E2020-08571-SPO-JP

PATIENT
  Age: 87 Year
  Sex: Female

DRUGS (1)
  1. ARICEPT [Suspect]
     Route: 048
     Dates: start: 20110127, end: 20110101

REACTIONS (1)
  - ALTERED STATE OF CONSCIOUSNESS [None]
